FAERS Safety Report 10021667 (Version 1)
Quarter: 2014Q1

REPORT INFORMATION
  Report Type: Report from Study
  Country: US (occurrence: US)
  Receive Date: 20140319
  Receipt Date: 20140319
  Transmission Date: 20141002
  Serious: Yes (Other)
  Sender: FDA-Public Use
  Company Number: US-JNJFOC-20140308445

PATIENT
  Age: 64 Year
  Sex: Female
  Weight: 97.52 kg

DRUGS (10)
  1. REMICADE [Suspect]
     Indication: RHEUMATOID ARTHRITIS
     Route: 042
     Dates: start: 201311
  2. REMICADE [Suspect]
     Indication: RHEUMATOID ARTHRITIS
     Route: 042
     Dates: start: 20131226
  3. PRO AIR [Concomitant]
     Indication: ASTHMA
     Dosage: 3-4 TIMES A DAY
     Route: 065
  4. NEXIUM [Concomitant]
     Indication: GASTROOESOPHAGEAL REFLUX DISEASE
     Route: 065
  5. ADVAIR [Concomitant]
     Indication: ASTHMA
     Route: 065
     Dates: start: 2011
  6. FOLIC ACID [Concomitant]
     Indication: RHEUMATOID ARTHRITIS
     Route: 048
     Dates: start: 201307
  7. FUROSEMIDE [Concomitant]
     Indication: BLOOD PRESSURE
     Route: 048
     Dates: start: 201307
  8. IBUPROFEN [Concomitant]
     Indication: PAIN
     Dosage: 3-4 HOURS AS NEEDED
     Route: 048
     Dates: start: 1998
  9. DUONEB [Concomitant]
     Indication: ASTHMA
     Dosage: 3-4 TIMES AS NEEDED
     Route: 065
     Dates: start: 1997
  10. SINGULAIR [Concomitant]
     Indication: ASTHMA
     Route: 048
     Dates: start: 2014

REACTIONS (9)
  - Pneumonia [Not Recovered/Not Resolved]
  - Bronchitis [Not Recovered/Not Resolved]
  - Asthma [Not Recovered/Not Resolved]
  - Headache [Not Recovered/Not Resolved]
  - Infusion related reaction [Recovered/Resolved]
  - Muscle spasms [Not Recovered/Not Resolved]
  - Vomiting [Recovered/Resolved]
  - Local swelling [Recovered/Resolved]
  - Hypersomnia [Not Recovered/Not Resolved]
